FAERS Safety Report 4360004-4 (Version None)
Quarter: 2004Q2

REPORT INFORMATION
  Report Type: 
  Country: None (occurrence: None)
  Receive Date: 20040518
  Receipt Date: 20040518
  Transmission Date: 20050107
  Serious: Yes (Other)
  Sender: FDA-Public Use
  Company Number: None

PATIENT
  Sex: Male
  Weight: 113.3993 kg

DRUGS (12)
  1. OXYCODONE- HCLER 80 MG (TEVA) - GENERIC FOR OXYCONTIN [Suspect]
     Indication: MERALGIA PARAESTHETICA
     Dosage: OXYCONTIN 80 MG 1 PO Q8H ON REGULAR DOSE SCHEDULE
     Route: 048
     Dates: start: 19920101
  2. OXYCODONE- HCLER 80 MG (TEVA) - GENERIC FOR OXYCONTIN [Suspect]
     Indication: RADICULOPATHY
     Dosage: OXYCONTIN 80 MG 1 PO Q8H ON REGULAR DOSE SCHEDULE
     Route: 048
     Dates: start: 19920101
  3. ALLOPURINOL [Concomitant]
  4. COLCHINE [Concomitant]
  5. DIOVAN [Concomitant]
  6. COREG [Concomitant]
  7. SPIRONOLACTONE [Concomitant]
  8. QUININE [Concomitant]
  9. CIMETIDINE HCL [Concomitant]
  10. METOCLOPRAMIDE [Concomitant]
  11. TRAZODONE HCL [Concomitant]
  12. NORCO [Concomitant]

REACTIONS (6)
  - AGITATION [None]
  - NAUSEA [None]
  - OVERDOSE [None]
  - PAIN EXACERBATED [None]
  - PHARMACEUTICAL PRODUCT COMPLAINT [None]
  - VOMITING [None]
